FAERS Safety Report 16609867 (Version 1)
Quarter: 2019Q3

REPORT INFORMATION
  Report Type: Spontaneous
  Country: SI (occurrence: SI)
  Receive Date: 20190722
  Receipt Date: 20190722
  Transmission Date: 20191004
  Serious: Yes (Other)
  Sender: FDA-Public Use
  Company Number: SI-BAYER-2019-134672

PATIENT
  Age: 73 Year
  Sex: Female

DRUGS (8)
  1. CONCOR [Concomitant]
     Active Substance: BISOPROLOL FUMARATE
     Dosage: 1.25 MG, UNK
  2. EDEMID [Concomitant]
     Active Substance: FUROSEMIDE
     Dosage: 125 MG, UNK
  3. ALDACTONE [Concomitant]
     Active Substance: SPIRONOLACTONE
     Dosage: 50 MG, QD
  4. ACIPAN [Concomitant]
     Active Substance: PANTOPRAZOLE SODIUM
     Dosage: 20 MG, UNK
  5. ALDACTONE [Concomitant]
     Active Substance: SPIRONOLACTONE
     Dosage: 25 MG, QD
  6. ADEMPAS [Suspect]
     Active Substance: RIOCIGUAT
     Indication: PULMONARY HYPERTENSION
     Dosage: 2.5 MG, Q8HR
     Dates: end: 201810
  7. FRAXIPARINA FORTE [Concomitant]
     Dosage: 0.6 ML/D
     Route: 058
  8. REMODULIN [Concomitant]
     Active Substance: TREPROSTINIL
     Dosage: 0.035 ML/H
     Dates: end: 201810

REACTIONS (1)
  - Pulmonary endarterectomy [None]

NARRATIVE: CASE EVENT DATE: 20181024
